FAERS Safety Report 7235383-0 (Version None)
Quarter: 2011Q1

REPORT INFORMATION
  Report Type: 
  Country: None (occurrence: None)
  Receive Date: 20110114
  Receipt Date: 20110114
  Transmission Date: 20110831
  Serious: Yes (Life-Threatening, Other)
  Sender: FDA-Public Use
  Company Number: None

PATIENT
  Age: 35 Year
  Sex: Male
  Weight: 72.5755 kg

DRUGS (1)
  1. LYRICA [Suspect]
     Indication: FIBROMYALGIA
     Dosage: 100 MG 2X DAILY PO
     Route: 048
     Dates: start: 20090723, end: 20110113

REACTIONS (5)
  - LEGAL PROBLEM [None]
  - ABNORMAL BEHAVIOUR [None]
  - MANIA [None]
  - CONFUSIONAL STATE [None]
  - THINKING ABNORMAL [None]
